FAERS Safety Report 9823236 (Version 1)
Quarter: 2014Q1

REPORT INFORMATION
  Report Type: Spontaneous
  Country: FR (occurrence: FR)
  Receive Date: 20140116
  Receipt Date: 20140116
  Transmission Date: 20141002
  Serious: Yes (Other)
  Sender: FDA-Public Use
  Company Number: FR-ACTAVIS-2013-24650

PATIENT
  Age: 31 Year
  Sex: Female

DRUGS (1)
  1. PARACETAMOL-CODEINE [Suspect]
     Indication: DENTAL DISCOMFORT
     Dosage: 1 DF, SINGLE
     Route: 048
     Dates: start: 20130826

REACTIONS (1)
  - Anaphylactoid reaction [Recovered/Resolved]
